FAERS Safety Report 25683870 (Version 1)
Quarter: 2025Q3

REPORT INFORMATION
  Report Type: Report from Study
  Country: CA (occurrence: CA)
  Receive Date: 20250814
  Receipt Date: 20250814
  Transmission Date: 20251020
  Serious: Yes (Other)
  Sender: ABBVIE
  Company Number: CA-ABBVIE-6410026

PATIENT
  Age: 46 Year
  Sex: Male

DRUGS (1)
  1. SKYRIZI [Suspect]
     Active Substance: RISANKIZUMAB-RZAA
     Indication: Crohn^s disease
     Dosage: DOSE FORM: SOLUTION FOR INJECTION IN PRE-FILLED INJECTOR
     Route: 058

REACTIONS (7)
  - Stoma obstruction [Unknown]
  - Stenosis [Unknown]
  - Crohn^s disease [Unknown]
  - Drug ineffective [Unknown]
  - Enteritis [Unknown]
  - Stoma complication [Unknown]
  - Gastrointestinal microorganism overgrowth [Unknown]

NARRATIVE: CASE EVENT DATE: 20250501
